FAERS Safety Report 8789992 (Version 2)
Quarter: 2012Q4

REPORT INFORMATION
  Report Type: 
  Country: US (occurrence: US)
  Receive Date: 20120917
  Receipt Date: 20120920
  Transmission Date: 20130627
  Serious: Yes (Hospitalization)
  Sender: FDA-Public Use
  Company Number: US-AMGEN-USASP2012046886

PATIENT
  Age: 56 Year
  Sex: Male
  Weight: 83.45 kg

DRUGS (15)
  1. PROLIA [Suspect]
     Indication: OSTEOPOROSIS
     Dosage: UNK UNK, q6mo
     Route: 058
     Dates: start: 20120427
  2. PROLIA [Suspect]
     Indication: OFF LABEL USE
  3. PREDNISONE [Concomitant]
     Indication: SYSTEMIC LUPUS ERYTHEMATOSUS
     Dosage: UNK UNK, qd
     Route: 048
  4. ERGOCALCIFEROL [Concomitant]
     Indication: VITAMIN D DEFICIENCY
     Dosage: UNK
     Route: 048
  5. LASIX                              /00032601/ [Concomitant]
     Indication: HYPERTENSION
     Dosage: UNK UNK, qd
     Route: 048
  6. AMLODIPINE [Concomitant]
     Indication: HYPERTENSION
     Dosage: UNK UNK, qd
     Route: 048
  7. HYDRALAZINE [Concomitant]
     Indication: HYPERTENSION
     Dosage: UNK UNK, tid
     Route: 048
  8. CELLCEPT                           /01275102/ [Concomitant]
     Indication: SYSTEMIC LUPUS ERYTHEMATOSUS
     Dosage: UNK UNK, bid
     Route: 048
  9. TAMSULOSIN [Concomitant]
     Indication: BENIGN PROSTATIC HYPERPLASIA
     Dosage: UNK UNK, qd
  10. WARFARIN [Concomitant]
     Dosage: 3 mg, qd
  11. MVI [Concomitant]
     Dosage: UNK
  12. CALCIUM [Concomitant]
     Dosage: UNK
  13. B12                                /00056201/ [Concomitant]
     Dosage: UNK
  14. HYDROXYCHLOROQUINE [Concomitant]
     Indication: SYSTEMIC LUPUS ERYTHEMATOSUS
     Dosage: UNK UNK, bid
  15. METOPROLOL [Concomitant]
     Indication: HYPERTENSION
     Dosage: UNK UNK, qd

REACTIONS (2)
  - Lobar pneumonia [Recovered/Resolved]
  - Bacteroides bacteraemia [Unknown]
